FAERS Safety Report 17746643 (Version 1)
Quarter: 2020Q2

REPORT INFORMATION
  Report Type: Spontaneous
  Country: US (occurrence: US)
  Receive Date: 20200505
  Receipt Date: 20200505
  Transmission Date: 20200714
  Serious: No
  Sender: FDA-Public Use
  Company Number: US-ROCHE-2345707

PATIENT
  Age: 74 Year
  Sex: Male
  Weight: 118.04 kg

DRUGS (2)
  1. ESBRIET [Suspect]
     Active Substance: PIRFENIDONE
     Indication: IDIOPATHIC PULMONARY FIBROSIS
     Dosage: ONGOING: YES
     Route: 048
     Dates: start: 20190502
  2. ESBRIET [Suspect]
     Active Substance: PIRFENIDONE
     Dosage: THREE PILL THREE TIMES A DAY: ONGOING: YES
     Route: 048
     Dates: start: 20190505

REACTIONS (10)
  - Taste disorder [Not Recovered/Not Resolved]
  - Weight decreased [Unknown]
  - Photosensitivity reaction [Unknown]
  - Rash [Unknown]
  - Asthenia [Not Recovered/Not Resolved]
  - Decreased appetite [Unknown]
  - Throat tightness [Not Recovered/Not Resolved]
  - Flatulence [Unknown]
  - Pruritus [Not Recovered/Not Resolved]
  - Decreased appetite [Not Recovered/Not Resolved]

NARRATIVE: CASE EVENT DATE: 20190822
